FAERS Safety Report 25184630 (Version 1)
Quarter: 2025Q2

REPORT INFORMATION
  Report Type: Report from Study
  Country: US (occurrence: US)
  Receive Date: 20250410
  Receipt Date: 20250410
  Transmission Date: 20250716
  Serious: Yes (Hospitalization)
  Sender: STEMLINE THERAPEUTICS
  Company Number: US-STEMLINE THERAPEUTICS, INC-2025-STML-US001278

PATIENT

DRUGS (1)
  1. ORSERDU [Suspect]
     Active Substance: ELACESTRANT
     Indication: Breast cancer female
     Dosage: 345 MG, DAILY
     Route: 048
     Dates: start: 202503

REACTIONS (7)
  - Hepatic pain [Unknown]
  - Hepatic lesion [Unknown]
  - Myalgia [Unknown]
  - Muscular weakness [Unknown]
  - Pain in extremity [Unknown]
  - Arthralgia [Unknown]
  - Metastases to spine [Unknown]
